FAERS Safety Report 9310934 (Version 1)
Quarter: 2013Q2

REPORT INFORMATION
  Report Type: Spontaneous
  Country: US (occurrence: None)
  Receive Date: 20130523
  Receipt Date: 20130523
  Transmission Date: 20140414
  Serious: Yes (Life-Threatening, Hospitalization)
  Sender: FDA-Public Use
  Company Number: None

PATIENT
  Age: 23 Year
  Sex: Male
  Weight: 116.58 kg

DRUGS (4)
  1. BORTEZOMIB [Suspect]
     Indication: ACUTE MYELOID LEUKAEMIA
     Route: 058
  2. MIDOSTAURIN [Suspect]
     Route: 048
  3. CEFEPIME/VANCO [Concomitant]
  4. TYLENOL [Concomitant]

REACTIONS (9)
  - Platelet count decreased [None]
  - Chills [None]
  - Chills [None]
  - Pyrexia [None]
  - Nausea [None]
  - Vomiting [None]
  - Tachycardia [None]
  - Headache [None]
  - Hypertension [None]
